FAERS Safety Report 9497657 (Version 4)
Quarter: 2014Q3

REPORT INFORMATION
  Report Type: Spontaneous
  Country: DK (occurrence: None)
  Receive Date: 20130830
  Receipt Date: 20140902
  Transmission Date: 20150326
  Serious: Yes (Other)
  Sender: FDA-Public Use
  Company Number: 1867443

PATIENT
  Sex: Female

DRUGS (6)
  1. ANASTROZOL [Concomitant]
     Active Substance: ANASTROZOLE
  2. EPIRUBICIN HYDROCHLORIDE. [Suspect]
     Active Substance: EPIRUBICIN HYDROCHLORIDE
     Indication: INVASIVE LOBULAR BREAST CARCINOMA
     Dosage: (NOT OTHERWISE SPECIFIED)
     Route: 042
     Dates: start: 20020524, end: 20030522
  3. EXEMESTAN [Concomitant]
  4. LETROZOL [Concomitant]
     Active Substance: LETROZOLE
  5. CYCLOPHOSPHAMIDE. [Concomitant]
     Active Substance: CYCLOPHOSPHAMIDE
  6. FLUOROURACIL. [Concomitant]
     Active Substance: FLUOROURACIL

REACTIONS (10)
  - Pain [None]
  - Invasive lobular breast carcinoma [None]
  - Malignant neoplasm progression [None]
  - Pulmonary function test decreased [None]
  - Quality of life decreased [None]
  - Dyspnoea [None]
  - Gastric disorder [None]
  - Cardiac failure [None]
  - Mobility decreased [None]
  - Impaired work ability [None]
